FAERS Safety Report 14893460 (Version 1)
Quarter: 2018Q2

REPORT INFORMATION
  Report Type: Spontaneous
  Country: CA (occurrence: CA)
  Receive Date: 20180514
  Receipt Date: 20180514
  Transmission Date: 20180711
  Serious: Yes (Hospitalization)
  Sender: FDA-Public Use
  Company Number: CA-SHIRE-CA201817118

PATIENT

DRUGS (1)
  1. ONCASPAR [Suspect]
     Active Substance: PEGASPARGASE
     Indication: PRODUCT USED FOR UNKNOWN INDICATION
     Dosage: 1850 IU, UNK
     Route: 042

REACTIONS (8)
  - Crying [Recovered/Resolved]
  - Abdominal pain [Recovered/Resolved]
  - Cough [Recovered/Resolved]
  - Defaecation urgency [Recovered/Resolved]
  - Body temperature increased [Recovered/Resolved]
  - Tachycardia [Recovered/Resolved]
  - Vomiting [Recovered/Resolved]
  - Retching [Recovered/Resolved]
